FAERS Safety Report 11355218 (Version 2)
Quarter: 2015Q3

REPORT INFORMATION
  Report Type: Spontaneous
  Country: IT (occurrence: IT)
  Receive Date: 20150807
  Receipt Date: 20150916
  Transmission Date: 20151125
  Serious: Yes (Other)
  Sender: FDA-Public Use
  Company Number: IT-SA-2015SA104590

PATIENT
  Age: 25 Year
  Sex: Female

DRUGS (3)
  1. FOLATE SODIUM [Concomitant]
     Active Substance: FOLATE SODIUM
  2. AUBAGIO [Suspect]
     Active Substance: TERIFLUNOMIDE
     Route: 048
     Dates: start: 20150331, end: 20150715
  3. VITAMIN B NOS [Concomitant]
     Active Substance: VITAMIN B

REACTIONS (2)
  - Abortion spontaneous [Unknown]
  - Exposure during pregnancy [Unknown]

NARRATIVE: CASE EVENT DATE: 201506
